FAERS Safety Report 7578211-6 (Version None)
Quarter: 2011Q2

REPORT INFORMATION
  Report Type: 
  Country: None (occurrence: None)
  Receive Date: 20110628
  Receipt Date: 20110620
  Transmission Date: 20111010
  Serious: Yes (Disabling)
  Sender: FDA-Public Use
  Company Number: B0711965A

PATIENT
  Sex: Male
  Weight: 42 kg

DRUGS (8)
  1. TACROLIMUS [Concomitant]
     Indication: IMMUNOSUPPRESSION
     Dosage: 1.31MG PER DAY
     Route: 065
     Dates: start: 20081127
  2. METHOTREXATE [Concomitant]
     Indication: IMMUNOSUPPRESSION
     Dosage: 10MGM2 PER DAY
     Route: 065
     Dates: start: 20081129, end: 20081204
  3. FLUDARA [Suspect]
     Indication: ALLOGENIC BONE MARROW TRANSPLANTATION THERAPY
     Dosage: 25MGM2 PER DAY
     Route: 042
     Dates: start: 20081122, end: 20081126
  4. GRAN [Concomitant]
     Dates: start: 20081205, end: 20081212
  5. URSO 250 [Concomitant]
     Dosage: 300MG PER DAY
     Route: 048
     Dates: start: 20081118, end: 20090122
  6. KYTRIL [Concomitant]
     Dosage: 6MG PER DAY
     Route: 042
     Dates: start: 20081123, end: 20081128
  7. ALKERAN [Suspect]
     Indication: ALLOGENIC BONE MARROW TRANSPLANTATION THERAPY
     Dosage: 40MGM2 PER DAY
     Route: 042
     Dates: start: 20081123, end: 20081124
  8. VICCLOX [Concomitant]
     Dosage: 750MG PER DAY
     Route: 042
     Dates: start: 20081123, end: 20081201

REACTIONS (7)
  - EATING DISORDER [None]
  - ALANINE AMINOTRANSFERASE INCREASED [None]
  - VOMITING [None]
  - DIARRHOEA [None]
  - ASPARTATE AMINOTRANSFERASE INCREASED [None]
  - OROPHARYNGEAL PAIN [None]
  - STOMATITIS [None]
